FAERS Safety Report 15257704 (Version 17)
Quarter: 2020Q1

REPORT INFORMATION
  Report Type: Report from Study
  Country: US (occurrence: US)
  Receive Date: 20180808
  Receipt Date: 20200327
  Transmission Date: 20200409
  Serious: Yes (Hospitalization, Other)
  Sender: FDA-Public Use
  Company Number: US-ACTELION-A-US2016-136081

PATIENT
  Age: 67 Year
  Sex: Male
  Weight: 95.24 kg

DRUGS (5)
  1. VELETRI [Suspect]
     Active Substance: EPOPROSTENOL
     Dosage: 19 NG/KG, PER MIN
     Route: 042
  2. VELETRI [Suspect]
     Active Substance: EPOPROSTENOL
     Dosage: 16 NG/KG, PER MIN
     Route: 042
  3. LETAIRIS [Concomitant]
     Active Substance: AMBRISENTAN
  4. VELETRI [Suspect]
     Active Substance: EPOPROSTENOL
     Dosage: 7 NG/KG, PER MIN
     Route: 042
     Dates: start: 20160505
  5. VELETRI [Suspect]
     Active Substance: EPOPROSTENOL
     Indication: PULMONARY HYPERTENSION
     Dosage: 12 NG/KG, PER MIN
     Route: 042

REACTIONS (29)
  - Flushing [Unknown]
  - Skin ulcer [Unknown]
  - Catheter management [Unknown]
  - Weight decreased [Unknown]
  - Prostate cancer [Unknown]
  - Skin disorder [Unknown]
  - Arthralgia [Unknown]
  - Vision blurred [Unknown]
  - Discharge [Unknown]
  - Blood magnesium decreased [Unknown]
  - Gait disturbance [Unknown]
  - Hip fracture [Unknown]
  - Pain in extremity [Unknown]
  - Rash macular [Unknown]
  - Haematuria [Unknown]
  - Fluid retention [Unknown]
  - Skin abrasion [Unknown]
  - Lacrimation increased [Unknown]
  - Pleural effusion [Not Recovered/Not Resolved]
  - Urosepsis [Unknown]
  - Pain in jaw [Unknown]
  - Infusion [Unknown]
  - Diarrhoea [Unknown]
  - Musculoskeletal stiffness [Unknown]
  - Hospitalisation [Unknown]
  - Ocular hyperaemia [Unknown]
  - Pain [Unknown]
  - Oedema peripheral [Unknown]
  - Rectal haemorrhage [Unknown]

NARRATIVE: CASE EVENT DATE: 20170531
